FAERS Safety Report 5262377-7 (Version None)
Quarter: 2007Q1

REPORT INFORMATION
  Report Type: 
  Country: None (occurrence: None)
  Receive Date: 20061208
  Receipt Date: 20060111
  Transmission Date: 20070707
  Serious: Yes (Other)
  Sender: FDA-Public Use
  Company Number: 2006UW00542

PATIENT
  Sex: Female

DRUGS (2)
  1. NEXIUM [Suspect]
     Indication: GASTROOESOPHAGEAL REFLUX DISEASE
  2. ESTRACE [Concomitant]

REACTIONS (4)
  - DRY EYE [None]
  - FATIGUE [None]
  - INTENTIONAL DRUG MISUSE [None]
  - PARAESTHESIA [None]
